FAERS Safety Report 9552210 (Version 1)
Quarter: 2013Q3

REPORT INFORMATION
  Report Type: Spontaneous
  Country: US (occurrence: None)
  Receive Date: 20130724
  Receipt Date: 20130724
  Transmission Date: 20140515
  Serious: Yes (Hospitalization, Disabling, Other)
  Sender: FDA-Public Use
  Company Number: PHEH2012US014640

PATIENT
  Age: 63 Year
  Sex: Male
  Weight: 135 kg

DRUGS (1)
  1. GLEEVEC [Suspect]
     Indication: ACUTE LYMPHOCYTIC LEUKAEMIA RECURRENT
     Route: 048
     Dates: start: 20120525, end: 20120627

REACTIONS (3)
  - Pleural effusion [None]
  - Diarrhoea [None]
  - Dyspnoea [None]
